FAERS Safety Report 25196785 (Version 1)
Quarter: 2025Q2

REPORT INFORMATION
  Report Type: Report from Study
  Country: CA (occurrence: CA)
  Receive Date: 20250415
  Receipt Date: 20250415
  Transmission Date: 20250717
  Serious: Yes (Death)
  Sender: AMGEN
  Company Number: CA-BEH-2025201571

PATIENT
  Age: 83 Year
  Sex: Male

DRUGS (1)
  1. AVACOPAN [Suspect]
     Active Substance: AVACOPAN
     Indication: Hyperkalaemia
     Dosage: 8.4 G, OD
     Route: 048
     Dates: start: 20231227

REACTIONS (1)
  - Death [Fatal]

NARRATIVE: CASE EVENT DATE: 20241009
